FAERS Safety Report 20013424 (Version 8)
Quarter: 2022Q2

REPORT INFORMATION
  Report Type: Report from Study
  Country: US (occurrence: US)
  Receive Date: 20211029
  Receipt Date: 20220527
  Transmission Date: 20220721
  Serious: Yes (Other)
  Sender: FDA-Public Use
  Company Number: US-GSKCCFUS-CASE-01201349_AE-70316

PATIENT

DRUGS (2)
  1. BELANTAMAB MAFODOTIN [Suspect]
     Active Substance: BELANTAMAB MAFODOTIN
     Indication: Plasma cell myeloma
     Dosage: UNK
     Dates: start: 20210902
  2. BELANTAMAB MAFODOTIN [Suspect]
     Active Substance: BELANTAMAB MAFODOTIN
     Dosage: 1.9 MG/KG CYCLE 2, Z (EVERY 28 DAYS)
     Dates: start: 20210930

REACTIONS (7)
  - Anterior chamber inflammation [Not Recovered/Not Resolved]
  - Vision blurred [Unknown]
  - Corneal disorder [Unknown]
  - Keratopathy [Unknown]
  - Anterior chamber flare [Unknown]
  - Visual acuity reduced [Unknown]
  - Eye disorder [Unknown]

NARRATIVE: CASE EVENT DATE: 20210101
